FAERS Safety Report 19246726 (Version 1)
Quarter: 2021Q2

REPORT INFORMATION
  Report Type: Spontaneous
  Country: US (occurrence: US)
  Receive Date: 20210512
  Receipt Date: 20210512
  Transmission Date: 20210717
  Serious: Yes (Disabling)
  Sender: FDA-Public Use
  Company Number: None

PATIENT
  Age: 45 Year
  Sex: Female
  Weight: 84.6 kg

DRUGS (9)
  1. TAMOXIFEN 20MG [Concomitant]
     Active Substance: TAMOXIFEN
  2. LEVOTHYROXINE 25MCG [Concomitant]
     Active Substance: LEVOTHYROXINE
  3. AZELASTINE HCI [Concomitant]
     Active Substance: AZELASTINE HYDROCHLORIDE
  4. VITAMIN D 10000 IU [Concomitant]
  5. IRON SUPPLEMENT [Concomitant]
     Active Substance: IRON
  6. NP THYROID [Suspect]
     Active Substance: LEVOTHYROXINE\LIOTHYRONINE
     Indication: HYPOTHYROIDISM
     Dosage: ?          QUANTITY:1 TABLET(S);?
     Route: 048
     Dates: start: 20210308, end: 20210504
  7. LIPOSOMAL [Concomitant]
     Active Substance: AMPHOTERICIN B
  8. VITAMIN C [Concomitant]
     Active Substance: ASCORBIC ACID
  9. ALLEGRA 180MG [Concomitant]

REACTIONS (2)
  - Fatigue [None]
  - Feeling cold [None]

NARRATIVE: CASE EVENT DATE: 20210501
